FAERS Safety Report 8981920 (Version 1)
Quarter: 2012Q4

REPORT INFORMATION
  Report Type: 
  Country: US (occurrence: US)
  Receive Date: 20121212
  Receipt Date: 20121212
  Transmission Date: 20130627
  Serious: Yes (Death, Other)
  Sender: FDA-Public Use
  Company Number: US-ASTELLAS-1122123

PATIENT
  Sex: Male

DRUGS (6)
  1. TARCEVA [Suspect]
     Indication: BRAIN NEOPLASM MALIGNANT
     Route: 065
  2. AVASTIN [Suspect]
     Indication: BRAIN NEOPLASM MALIGNANT
     Route: 065
  3. TEMODAR [Concomitant]
  4. CPT-11 [Concomitant]
  5. DECADRON [Concomitant]
     Route: 065
  6. CARBOPLATIN [Concomitant]

REACTIONS (5)
  - Death [Fatal]
  - Convulsion [Unknown]
  - Aphasia [Unknown]
  - Hemiparesis [Unknown]
  - Disease progression [Unknown]
